FAERS Safety Report 15932899 (Version 3)
Quarter: 2019Q1

REPORT INFORMATION
  Report Type: Spontaneous
  Country: JP (occurrence: JP)
  Receive Date: 20190207
  Receipt Date: 20190319
  Transmission Date: 20190417
  Serious: Yes (Other)
  Sender: FDA-Public Use
  Company Number: JP-PFIZER INC-2019054819

PATIENT
  Age: 82 Year
  Sex: Male
  Weight: 47 kg

DRUGS (6)
  1. MEROPENEM. [Suspect]
     Active Substance: MEROPENEM
     Dosage: UNK
     Route: 041
  2. CILOSTAZOL. [Concomitant]
     Active Substance: CILOSTAZOL
     Dosage: 2 DF, 2X/DAY (2 TABLETS PER DOSE, B.I.D (AFTER BREAKFAST, AFTER SUPPER))
  3. ALLOPURINOL. [Concomitant]
     Active Substance: ALLOPURINOL
     Dosage: 1 DF, 1X/DAY (1 TABLET PER DOSE, ONCE A DAY (AFTER BREAKFAST))
  4. AMLODIN [Concomitant]
     Active Substance: AMLODIPINE BESYLATE
     Dosage: UNK
  5. NAFTOPIDIL OD [Concomitant]
     Active Substance: NAFTOPIDIL
     Dosage: 1 DF, 1X/DAY (1 TABLET PER DOSE, ONCE A DAY (AFTER BREAKFAST))
  6. INDAPAMIDE. [Concomitant]
     Active Substance: INDAPAMIDE
     Dosage: 1 DF, 1X/DAY (1 TABLET PER DOSE, ONCE A DAY (AFTER BREAKFAST))

REACTIONS (1)
  - Shock [Unknown]
